FAERS Safety Report 19192627 (Version 4)
Quarter: 2021Q4

REPORT INFORMATION
  Report Type: Report from Study
  Country: US (occurrence: US)
  Receive Date: 20210429
  Receipt Date: 20211229
  Transmission Date: 20220303
  Serious: Yes (Other)
  Sender: FDA-Public Use
  Company Number: NVSC2021US094513

PATIENT
  Age: 78 Year
  Sex: Female

DRUGS (2)
  1. MAYZENT [Suspect]
     Active Substance: SIPONIMOD
     Indication: Multiple sclerosis
     Dosage: 1 MG, QD
     Route: 048
     Dates: start: 20210202
  2. MAYZENT [Suspect]
     Active Substance: SIPONIMOD
     Dosage: 1 MG
     Route: 048
     Dates: start: 202105, end: 202106

REACTIONS (4)
  - Secondary progressive multiple sclerosis [Unknown]
  - Malaise [Recovered/Resolved]
  - Concussion [Recovered/Resolved]
  - Memory impairment [Recovered/Resolved]

NARRATIVE: CASE EVENT DATE: 20210501
